FAERS Safety Report 16108552 (Version 1)
Quarter: 2019Q1

REPORT INFORMATION
  Report Type: Spontaneous
  Country: US (occurrence: US)
  Receive Date: 20190323
  Receipt Date: 20190323
  Transmission Date: 20190418
  Serious: No
  Sender: FDA-Public Use
  Company Number: US-TEVA-2019-US-1030935

PATIENT
  Sex: Female

DRUGS (1)
  1. LORAZEPAM TABLETS [Suspect]
     Active Substance: LORAZEPAM
     Indication: INSOMNIA
     Dosage: AT NIGHT
     Route: 065

REACTIONS (10)
  - Cortisol increased [Unknown]
  - Headache [Unknown]
  - Asthenia [Unknown]
  - Insomnia [Unknown]
  - Panic attack [Unknown]
  - Feeling abnormal [Unknown]
  - Dry skin [Unknown]
  - Drug intolerance [Unknown]
  - Anxiety [Unknown]
  - Dry mouth [Unknown]
